FAERS Safety Report 7085684-4 (Version None)
Quarter: 2010Q4

REPORT INFORMATION
  Report Type: 
  Country: None (occurrence: None)
  Receive Date: 20101105
  Receipt Date: 20101103
  Transmission Date: 20110411
  Serious: Yes (Death)
  Sender: FDA-Public Use
  Company Number: VE-PFIZER INC-2010136045

PATIENT
  Age: 49 Year
  Sex: Male

DRUGS (7)
  1. LIPITOR [Suspect]
     Dosage: 40 MG, UNK
     Route: 048
     Dates: start: 20100601
  2. ALENDRONATE SODIUM [Concomitant]
     Dosage: 70 MG, UNK
     Route: 048
  3. CIPROFLOXACIN [Concomitant]
     Route: 048
  4. NEURONTIN [Concomitant]
     Dosage: 300 MG, UNK
  5. VITAMIN B-12 [Concomitant]
     Route: 048
  6. GABAPENTIN [Concomitant]
     Dosage: 300 MG, UNK
     Route: 048
  7. ASPIRIN [Concomitant]
     Dosage: 100 MG, UNK
     Route: 048

REACTIONS (1)
  - MYOCARDIAL INFARCTION [None]
